FAERS Safety Report 6913597-4 (Version None)
Quarter: 2010Q3

REPORT INFORMATION
  Report Type: 
  Country: None (occurrence: None)
  Receive Date: 20100805
  Receipt Date: 20100805
  Transmission Date: 20110219
  Serious: Yes (Other)
  Sender: FDA-Public Use
  Company Number: None

PATIENT
  Sex: Male
  Weight: 78 kg

DRUGS (1)
  1. DOXIL [Suspect]
     Indication: MULTIPLE MYELOMA
     Dosage: 57.60 MG IV
     Route: 042
     Dates: start: 20090402

REACTIONS (5)
  - ANXIETY [None]
  - DYSPNOEA [None]
  - FLUSHING [None]
  - HYPOXIA [None]
  - WHEEZING [None]
